FAERS Safety Report 10830393 (Version 2)
Quarter: 2015Q3

REPORT INFORMATION
  Report Type: Spontaneous
  Country: US (occurrence: US)
  Receive Date: 20150219
  Receipt Date: 20150713
  Transmission Date: 20151125
  Serious: No
  Sender: FDA-Public Use
  Company Number: US-PFIZER INC-2015054395

PATIENT
  Age: 38 Year
  Sex: Female

DRUGS (2)
  1. FLECTOR [Suspect]
     Active Substance: DICLOFENAC EPOLAMINE
     Indication: NECK PAIN
     Dosage: UNK
  2. FLECTOR [Suspect]
     Active Substance: DICLOFENAC EPOLAMINE
     Indication: MUSCULOSKELETAL PAIN

REACTIONS (1)
  - Skin irritation [Recovered/Resolved]
